FAERS Safety Report 19686775 (Version 1)
Quarter: 2021Q3

REPORT INFORMATION
  Report Type: Spontaneous
  Country: US (occurrence: US)
  Receive Date: 20210811
  Receipt Date: 20210811
  Transmission Date: 20211014
  Serious: No
  Sender: FDA-Public Use
  Company Number: US-MEDEXUS PHARMA, INC.-2020MED00201

PATIENT
  Sex: Female

DRUGS (2)
  1. FOLIC ACID. [Concomitant]
     Active Substance: FOLIC ACID
  2. RASUVO [Suspect]
     Active Substance: METHOTREXATE SODIUM
     Indication: RHEUMATOID ARTHRITIS
     Dosage: UNK UNK, ONCE BEFORE BED INJECTED INTO THE SIDES OF HER THIGH AND/OR AN AREA NEAR HER LOVE HANDLES
     Dates: start: 20200619, end: 20200619

REACTIONS (8)
  - Rheumatoid arthritis [Unknown]
  - Injection site indentation [Unknown]
  - Fatigue [Unknown]
  - Cystitis [Unknown]
  - Product use complaint [Not Recovered/Not Resolved]
  - Injection site haemorrhage [Unknown]
  - Injection site bruising [Unknown]
  - Therapeutic product effect incomplete [Unknown]

NARRATIVE: CASE EVENT DATE: 2020
